FAERS Safety Report 23575976 (Version 1)
Quarter: 2024Q1

REPORT INFORMATION
  Report Type: Report from Study
  Country: EG (occurrence: EG)
  Receive Date: 20240228
  Receipt Date: 20240228
  Transmission Date: 20240410
  Serious: Yes (Other)
  Sender: FDA-Public Use
  Company Number: EG-SANDOZ-SDZ2023EG014652

PATIENT
  Age: 54 Year
  Sex: Male
  Weight: 82 kg

DRUGS (14)
  1. HYRIMOZ [Suspect]
     Active Substance: ADALIMUMAB-ADAZ
     Indication: Sarcoidosis
     Dosage: 40 MG, Q2W
     Route: 058
     Dates: start: 20230815
  2. AMAGLUST [Concomitant]
     Indication: Prophylaxis
     Dosage: ONE TABLET ONCE DAILY BEFORE BREAKFAST
     Route: 048
  3. AMAGLUST [Concomitant]
     Indication: Blood glucose abnormal
  4. AMAGLUST [Concomitant]
     Indication: Blood pressure measurement
  5. ASPIRIN [Concomitant]
     Active Substance: ASPIRIN
     Indication: Cardiac disorder
     Dosage: ONE TABLET ONCE DAILY AT NIGHT
     Route: 048
  6. ASPIRIN [Concomitant]
     Active Substance: ASPIRIN
     Indication: Cardiac disorder
     Dosage: UNK
     Route: 048
  7. BIOSTRONG [Concomitant]
     Indication: Diastolic hypotension
     Dosage: 1 DF, QD BEFORE BREAKFAST, ONE WEEK AGO
     Route: 048
  8. CONTROLOC [Concomitant]
     Active Substance: PANTOPRAZOLE SODIUM
     Indication: Gastrointestinal disorder
     Dosage: ONE TABLET ONCE DAILY
     Route: 048
  9. CORTISONE ACETATE [Concomitant]
     Active Substance: CORTISONE ACETATE
     Indication: Sarcoidosis
     Dosage: UNK, STARTED WITH DOSE 20 MG DAILY, THEN 15 MG DAILY, THEN 30 MG DAILY (ONE TABLET OF 20 MG WITH TWO
     Route: 048
  10. CORTISONE ACETATE [Concomitant]
     Active Substance: CORTISONE ACETATE
     Indication: Prophylaxis
  11. JANUMET [Concomitant]
     Active Substance: METFORMIN HYDROCHLORIDE\SITAGLIPTIN PHOSPHATE
     Indication: Diabetes mellitus
     Dosage: ONE TABLET ONCE DAILY AT MORNING
     Route: 048
  12. EZETIMIBE\ROSUVASTATIN ZINC [Concomitant]
     Active Substance: EZETIMIBE\ROSUVASTATIN ZINC
     Indication: Blood cholesterol
     Dosage: ONE CAPSULE ONCE DAILY
     Route: 048
  13. Omega 3 plus [Concomitant]
     Indication: Vitamin supplementation
     Dosage: ONE CAPSULE ONCE DAILY
     Route: 065
  14. PLAVIX [Concomitant]
     Active Substance: CLOPIDOGREL BISULFATE
     Indication: Cardiac disorder
     Dosage: ONE TABLET ONCE DAILY AT NIGHT
     Route: 048

REACTIONS (5)
  - Blood glucose increased [Unknown]
  - Intentional dose omission [Unknown]
  - Diastolic hypotension [Unknown]
  - Fatigue [Recovered/Resolved]
  - Off label use [Unknown]

NARRATIVE: CASE EVENT DATE: 20230822
